FAERS Safety Report 9654450 (Version 2)
Quarter: 2013Q4

REPORT INFORMATION
  Report Type: Spontaneous
  Country: GB (occurrence: GB)
  Receive Date: 20131029
  Receipt Date: 20131029
  Transmission Date: 20140711
  Serious: Yes (Other)
  Sender: FDA-Public Use
  Company Number: CHPA2013GB015784

PATIENT
  Age: 84 Year
  Sex: Male

DRUGS (1)
  1. OTRIVIN [Suspect]
     Indication: NASAL CONGESTION
     Dosage: UNK,UNK

REACTIONS (5)
  - Drug dependence [Unknown]
  - Nasal obstruction [Unknown]
  - Speech disorder [Unknown]
  - Eating disorder [Unknown]
  - Inappropriate schedule of drug administration [Unknown]
